FAERS Safety Report 7936117-4 (Version None)
Quarter: 2011Q4

REPORT INFORMATION
  Report Type: 
  Country: None (occurrence: None)
  Receive Date: 20111123
  Receipt Date: 20111114
  Transmission Date: 20120403
  Serious: Yes (Disabling, Other)
  Sender: FDA-Public Use
  Company Number: US-JNJFOC-20111008085

PATIENT
  Sex: Male

DRUGS (5)
  1. INVEGA SUSTENNA [Suspect]
     Route: 030
     Dates: start: 20110921
  2. INVEGA SUSTENNA [Suspect]
     Route: 030
     Dates: start: 20110801
  3. INVEGA SUSTENNA [Suspect]
     Route: 030
     Dates: start: 20110307
  4. LAMICTAL [Concomitant]
     Indication: CONVULSION
     Dosage: 100-150 MG
     Route: 065
     Dates: start: 20100101
  5. INVEGA SUSTENNA [Suspect]
     Indication: PSYCHOTIC DISORDER
     Route: 030
     Dates: start: 20110328

REACTIONS (1)
  - THERAPEUTIC RESPONSE DECREASED [None]
